FAERS Safety Report 7757632-2 (Version None)
Quarter: 2011Q3

REPORT INFORMATION
  Report Type: 
  Country: None (occurrence: None)
  Receive Date: 20110916
  Receipt Date: 20110902
  Transmission Date: 20111222
  Serious: Yes (Other)
  Sender: FDA-Public Use
  Company Number: PHHY2011BR78771

PATIENT
  Sex: Male

DRUGS (2)
  1. CARBAMAZEPINE [Concomitant]
     Indication: EPILEPSY
     Dosage: 2 DF, A DAY
     Route: 048
  2. DIOVAN HCT [Suspect]
     Indication: HYPERTENSION
     Dosage: 1 DF, QD
     Route: 048

REACTIONS (2)
  - COELIAC DISEASE [None]
  - DIARRHOEA [None]
